FAERS Safety Report 6044662-4 (Version None)
Quarter: 2009Q1

REPORT INFORMATION
  Report Type: 
  Country: None (occurrence: None)
  Receive Date: 20090120
  Receipt Date: 20090113
  Transmission Date: 20090719
  Serious: Yes (Hospitalization)
  Sender: FDA-Public Use
  Company Number: CZ-ROCHE-607797

PATIENT
  Sex: Female
  Weight: 69.9 kg

DRUGS (9)
  1. METHOXY POLYETHYLENE GLYCOL-EPOETIN BETA [Suspect]
     Dosage: DOSAGE FORM REPORTED AS SYRINGE.
     Route: 042
     Dates: start: 20080716
  2. ACIDUM ACETYLSALICYLICUM [Concomitant]
     Dates: start: 20081008
  3. VITAMIN B COMPLEX CAP [Concomitant]
     Dosage: DRUG NAME REPOTED AS B COMPLEX FORTE.
     Dates: start: 20040101
  4. ACIDUM ASCORBICUM [Concomitant]
     Dates: start: 20040101
  5. FUROSEMID [Concomitant]
     Dates: start: 20040101
  6. OMEPRAZOLE [Concomitant]
     Dates: start: 20040101
  7. CALCITRIOL [Concomitant]
     Dates: start: 20040101
  8. DIPYRONE INJ [Concomitant]
     Dates: start: 20070101
  9. INSULINUM [Concomitant]
     Dates: start: 20070101

REACTIONS (1)
  - PNEUMONIA [None]
